FAERS Safety Report 5594970-6 (Version None)
Quarter: 2007Q4

REPORT INFORMATION
  Report Type: 
  Country: None (occurrence: None)
  Receive Date: 20071218
  Receipt Date: 20070531
  Transmission Date: 20080405
  Serious: Yes (Hospitalization, Other)
  Sender: FDA-Public Use
  Company Number: 2006099708

PATIENT
  Age: 45 Year
  Sex: Male

DRUGS (2)
  1. BEXTRA [Suspect]
     Indication: PAIN
     Dosage: 10 MG, 1 IN 1 D
     Dates: start: 20030101, end: 20030801
  2. VIOXX [Suspect]
     Dosage: ORAL
     Route: 048
     Dates: start: 20021125, end: 20030812

REACTIONS (2)
  - CARDIAC FAILURE CONGESTIVE [None]
  - MYOCARDIAL INFARCTION [None]
